FAERS Safety Report 5336482-0 (Version None)
Quarter: 2007Q2

REPORT INFORMATION
  Report Type: 
  Country: None (occurrence: None)
  Receive Date: 20070524
  Receipt Date: 20070510
  Transmission Date: 20071010
  Serious: Yes (Other)
  Sender: FDA-Public Use
  Company Number: FABR-11991

PATIENT
  Age: 27 Year
  Sex: Male
  Weight: 70 kg

DRUGS (4)
  1. FABRAZYME [Suspect]
     Indication: FABRY'S DISEASE
     Dosage: 70 MG Q2WKS IV
     Route: 042
     Dates: start: 20030901, end: 20070510
  2. PREDNISOLONE [Concomitant]
  3. PIRITON [Concomitant]
  4. PARACETAMOL [Concomitant]

REACTIONS (6)
  - BLOOD PRESSURE SYSTOLIC INCREASED [None]
  - INFUSION RELATED REACTION [None]
  - NAUSEA [None]
  - PARAESTHESIA ORAL [None]
  - PRURITUS [None]
  - URTICARIA [None]
